FAERS Safety Report 4951198-8 (Version None)
Quarter: 2006Q1

REPORT INFORMATION
  Report Type: 
  Country: None (occurrence: None)
  Receive Date: 20060314
  Receipt Date: 20060302
  Transmission Date: 20060701
  Serious: Yes (Other)
  Sender: FDA-Public Use
  Company Number: 200610231BFR

PATIENT
  Age: 44 Year
  Sex: Female
  Weight: 48.4 kg

DRUGS (2)
  1. SORAFENIB [Suspect]
     Indication: METASTATIC RENAL CELL CARCINOMA
     Dosage: 800 + 400 MG, TOTAL DAILY, ORAL
     Route: 048
     Dates: start: 20050728, end: 20050801
  2. SORAFENIB [Suspect]
     Indication: METASTATIC RENAL CELL CARCINOMA
     Dosage: 800 + 400 MG, TOTAL DAILY, ORAL
     Route: 048
     Dates: start: 20050801, end: 20060223

REACTIONS (1)
  - RETINAL VEIN THROMBOSIS [None]
